FAERS Safety Report 24260042 (Version 1)
Quarter: 2024Q3

REPORT INFORMATION
  Report Type: Spontaneous
  Country: US (occurrence: None)
  Receive Date: 20240828
  Receipt Date: 20240828
  Transmission Date: 20241017
  Serious: Yes (Hospitalization)
  Sender: Public
  Company Number: None

PATIENT
  Age: 12 Year
  Sex: Male

DRUGS (2)
  1. DEFERASIROX [Suspect]
     Active Substance: DEFERASIROX
     Indication: Sickle cell disease
     Dosage: FREQUENCY : DAILY;?
     Route: 048
     Dates: start: 202209
  2. ENDARI [Concomitant]
     Active Substance: GLUTAMINE

REACTIONS (8)
  - Sickle cell anaemia with crisis [None]
  - Abdominal pain [None]
  - Constipation [None]
  - Asthma [None]
  - Hepatic failure [None]
  - Multiple allergies [None]
  - Hepatic enzyme increased [None]
  - Therapy interrupted [None]

NARRATIVE: CASE EVENT DATE: 20240803
